FAERS Safety Report 23328782 (Version 2)
Quarter: 2024Q1

REPORT INFORMATION
  Report Type: Spontaneous
  Country: PT (occurrence: PT)
  Receive Date: 20231221
  Receipt Date: 20240106
  Transmission Date: 20240410
  Serious: Yes (Other)
  Sender: FDA-Public Use
  Company Number: PT-AUROBINDO-AUR-APL-2023-079460

PATIENT
  Age: 30 Year
  Sex: Male

DRUGS (2)
  1. CEFTRIAXONE [Suspect]
     Active Substance: CEFTRIAXONE\CEFTRIAXONE SODIUM
     Indication: Empyema
     Dosage: UNK COMPLETED IN 21 DAYS
     Route: 065
  2. CLINDAMYCIN [Suspect]
     Active Substance: CLINDAMYCIN
     Indication: Empyema
     Dosage: UNK COMPLETED IN 21 DAYS
     Route: 065

REACTIONS (3)
  - Procedural pneumothorax [Unknown]
  - Pneumothorax [Unknown]
  - Drug ineffective [Unknown]
